FAERS Safety Report 18782982 (Version 1)
Quarter: 2021Q1

REPORT INFORMATION
  Report Type: Spontaneous
  Country: US (occurrence: US)
  Receive Date: 20210125
  Receipt Date: 20210125
  Transmission Date: 20210419
  Serious: Yes (Hospitalization, Other)
  Sender: FDA-Public Use
  Company Number: US-CURIUM-2002000119

PATIENT
  Age: 69 Year
  Sex: Female

DRUGS (1)
  1. TECHNESCAN HDP [Suspect]
     Active Substance: TECHNETIUM TC-99M OXIDRONATE
     Indication: BONE SCAN
     Dosage: NUMBER OF SEPARATE DOSAGES: 1
     Route: 042
     Dates: start: 20020215, end: 20020215

REACTIONS (3)
  - Injection site extravasation [Unknown]
  - Pyrexia [Unknown]
  - Injection site cellulitis [Unknown]

NARRATIVE: CASE EVENT DATE: 20020215
